FAERS Safety Report 4378921-8 (Version None)
Quarter: 2004Q2

REPORT INFORMATION
  Report Type: 
  Country: None (occurrence: None)
  Receive Date: 20040610
  Receipt Date: 20040528
  Transmission Date: 20050107
  Serious: Yes (Hospitalization)
  Sender: FDA-Public Use
  Company Number: 2004036068

PATIENT
  Age: 71 Year
  Sex: Male

DRUGS (6)
  1. NORVASC [Suspect]
     Indication: HYPERTENSION
     Dosage: 2.5 MG (1 IN 1 D), ORAL
     Route: 048
     Dates: end: 20040513
  2. CARDENALIN (DOXAZOSIN) [Suspect]
     Indication: HYPERTENSION
     Dosage: 2 MG (1 IN 1 D), ORAL
     Route: 048
     Dates: end: 20040422
  3. FUROSEMIDE [Suspect]
     Indication: ILL-DEFINED DISORDER
     Dosage: 20 MG (1 IN 1D), ORAL
     Route: 048
     Dates: end: 20040422
  4. BUFFERIN [Suspect]
     Indication: ILL-DEFINED DISORDER
     Dosage: 81 MG (1 IN 1D), ORAL
     Route: 048
     Dates: end: 20040422
  5. TOLBUTAMIDE (TOLBUTAMIDE) [Suspect]
     Indication: ILL-DEFINED DISORDER
     Dosage: 750 MG (1 D), ORAL
     Route: 048
     Dates: end: 20040422
  6. PERI-COLACE [Suspect]
     Indication: ILL-DEFINED DISORDER
     Dosage: ORAL
     Route: 048
     Dates: end: 20040422

REACTIONS (2)
  - BLOOD PRESSURE INCREASED [None]
  - DRUG ERUPTION [None]
